FAERS Safety Report 6750038-4 (Version None)
Quarter: 2010Q2

REPORT INFORMATION
  Report Type: 
  Country: None (occurrence: None)
  Receive Date: 20100601
  Receipt Date: 20100518
  Transmission Date: 20101027
  Serious: Yes (Other)
  Sender: FDA-Public Use
  Company Number: JP-PFIZER INC-2010029731

PATIENT
  Age: 54 Year
  Sex: Female

DRUGS (6)
  1. AZULFIDINE [Suspect]
     Indication: RHEUMATOID ARTHRITIS
     Dosage: 500 MG, 2X/DAY
     Dates: start: 20100204, end: 20100303
  2. OLMESARTAN MEDOXOMIL [Concomitant]
     Route: 048
     Dates: end: 20100303
  3. ATELEC [Concomitant]
     Route: 048
     Dates: end: 20100303
  4. MAGNESIUM OXIDE [Concomitant]
     Route: 048
     Dates: end: 20100303
  5. CELECOXIB [Concomitant]
     Route: 048
     Dates: start: 20100204, end: 20100303
  6. MUCOSTA [Concomitant]
     Route: 048
     Dates: start: 20100204, end: 20100303

REACTIONS (1)
  - DRUG RASH WITH EOSINOPHILIA AND SYSTEMIC SYMPTOMS [None]
